FAERS Safety Report 6438542-X (Version None)
Quarter: 2009Q4

REPORT INFORMATION
  Report Type: 
  Country: None (occurrence: None)
  Receive Date: 20091110
  Receipt Date: 20091028
  Transmission Date: 20100525
  Serious: Yes (Hospitalization)
  Sender: FDA-Public Use
  Company Number: 8054046

PATIENT
  Sex: Female

DRUGS (2)
  1. PREDNISOLONE SODIUM PHOSPHATE [Suspect]
     Indication: RHEUMATOID ARTHRITIS
     Dosage: 5 MG TRP
     Route: 064
     Dates: start: 20040304
  2. ARAVA [Suspect]
     Indication: RHEUMATOID ARTHRITIS
     Dosage: 20 MG TRP
     Route: 064
     Dates: start: 20040415, end: 20050701

REACTIONS (4)
  - CARDIAC MURMUR [None]
  - CONGENITAL HEART VALVE DISORDER [None]
  - MATERNAL DRUGS AFFECTING FOETUS [None]
  - PREMATURE BABY [None]
